FAERS Safety Report 9014291 (Version 2)
Quarter: 2013Q1

REPORT INFORMATION
  Report Type: Other
  Country: GB (occurrence: GB)
  Receive Date: 20130115
  Receipt Date: 20130205
  Transmission Date: 20140127
  Serious: Yes (Other)
  Sender: FDA-Public Use
  Company Number: GB-WATSON-2012-23430

PATIENT
  Age: 45 Year
  Sex: Female

DRUGS (1)
  1. OMEPRAZOLE (UNKNOWN) [Suspect]
     Indication: REFLUX LARYNGITIS
     Dosage: 40 MG, DAILY
     Route: 048
     Dates: start: 20121122, end: 20121130

REACTIONS (2)
  - Depression [Recovering/Resolving]
  - Panic attack [Recovering/Resolving]
